FAERS Safety Report 5323385-0 (Version None)
Quarter: 2007Q2

REPORT INFORMATION
  Report Type: 
  Country: None (occurrence: None)
  Receive Date: 20070514
  Receipt Date: 20070502
  Transmission Date: 20071010
  Serious: Yes (Other)
  Sender: FDA-Public Use
  Company Number: PHBS2007NO07574

PATIENT
  Sex: Male

DRUGS (1)
  1. TEGRETOL [Suspect]
     Indication: ALCOHOL WITHDRAWAL SYNDROME
     Route: 065

REACTIONS (3)
  - ANGIOEDEMA [None]
  - DYSPNOEA [None]
  - SPEECH DISORDER [None]
